FAERS Safety Report 9123110 (Version 1)
Quarter: 2013Q1

REPORT INFORMATION
  Report Type: Spontaneous
  Country: US (occurrence: US)
  Receive Date: 20130115
  Receipt Date: 20130115
  Transmission Date: 20140127
  Serious: Yes (Hospitalization)
  Sender: FDA-Public Use
  Company Number: US-BAYER-2013-004503

PATIENT
  Age: 36 Year
  Sex: Female

DRUGS (3)
  1. YAZ [Suspect]
  2. ENDONE [Concomitant]
     Dosage: 5 MG, EVERY 6 HOURS FOR 3 DAYS
     Route: 048
     Dates: start: 20100613
  3. DIAZEPAM [Concomitant]
     Dosage: 5 MG, HS FOR 3 DAYS
     Route: 048
     Dates: start: 20100613

REACTIONS (1)
  - Deep vein thrombosis [Recovered/Resolved]
